FAERS Safety Report 22051167 (Version 2)
Quarter: 2023Q1

REPORT INFORMATION
  Report Type: Spontaneous
  Country: JP (occurrence: JP)
  Receive Date: 20230301
  Receipt Date: 20230314
  Transmission Date: 20230417
  Serious: Yes (Life-Threatening)
  Sender: FDA-Public Use
  Company Number: PA2022JP000476

PATIENT
  Age: 84 Year
  Sex: Male
  Weight: 64.8 kg

DRUGS (14)
  1. REMIMAZOLAM [Suspect]
     Active Substance: REMIMAZOLAM
     Indication: General anaesthesia
     Dosage: 9 MG
     Route: 042
     Dates: start: 20220331, end: 20220331
  2. REMIMAZOLAM [Suspect]
     Active Substance: REMIMAZOLAM
     Dosage: 50 MG, QH
     Route: 042
     Dates: start: 20220331, end: 20220331
  3. REMIMAZOLAM [Suspect]
     Active Substance: REMIMAZOLAM
     Dosage: 30 MG, QH
     Route: 042
     Dates: start: 20220331, end: 20220331
  4. REMIFENTANIL HYDROCHLORIDE [Suspect]
     Active Substance: REMIFENTANIL HYDROCHLORIDE
     Indication: General anaesthesia
     Dosage: UNK
     Route: 042
     Dates: start: 20220331
  5. ROCURONIUM BROMIDE [Suspect]
     Active Substance: ROCURONIUM BROMIDE
     Indication: General anaesthesia
     Dosage: 50 MG
     Route: 042
     Dates: start: 20220331, end: 20220331
  6. ROCURONIUM BROMIDE [Suspect]
     Active Substance: ROCURONIUM BROMIDE
     Dosage: 10 MG
     Route: 042
     Dates: start: 20220331, end: 20220331
  7. ROCURONIUM BROMIDE [Suspect]
     Active Substance: ROCURONIUM BROMIDE
     Dosage: 5 MG
     Route: 042
     Dates: start: 20220331
  8. FLUMAZENIL [Concomitant]
     Active Substance: FLUMAZENIL
     Indication: General anaesthesia
     Dosage: UNK
     Route: 042
     Dates: start: 20220331, end: 20220331
  9. FLUMAZENIL [Concomitant]
     Active Substance: FLUMAZENIL
     Dosage: 5 ML
     Route: 042
     Dates: start: 20220331
  10. FLUMAZENIL [Concomitant]
     Active Substance: FLUMAZENIL
     Dosage: 3 ML
     Route: 042
     Dates: start: 20220331
  11. BRIDION [Concomitant]
     Active Substance: SUGAMMADEX
     Indication: Product used for unknown indication
     Dosage: UNK
     Route: 065
     Dates: start: 20220331
  12. BRIDION [Concomitant]
     Active Substance: SUGAMMADEX
     Dosage: 200 MG
     Route: 065
     Dates: start: 20220331
  13. LIDOCAINE [Concomitant]
     Active Substance: LIDOCAINE
     Indication: Product used for unknown indication
     Dosage: UNK
     Route: 065
     Dates: start: 20220331
  14. MAGNESOL [GLUCOSE;MAGNESIUM SULFATE] [Concomitant]
     Indication: Product used for unknown indication
     Dosage: UNK
     Route: 065
     Dates: start: 20220331

REACTIONS (9)
  - Infusion site extravasation [Recovered/Resolved]
  - Administration site swelling [Recovered/Resolved]
  - Ventricular tachycardia [Unknown]
  - Oxygen saturation decreased [Recovered/Resolved]
  - Depressed level of consciousness [Recovering/Resolving]
  - Respiratory rate decreased [Recovered/Resolved]
  - Glossoptosis [Unknown]
  - Sedation [Unknown]
  - Drug interaction [Unknown]

NARRATIVE: CASE EVENT DATE: 20220331
